FAERS Safety Report 4757592-2 (Version None)
Quarter: 2005Q3

REPORT INFORMATION
  Report Type: 
  Country: None (occurrence: None)
  Receive Date: 20050831
  Receipt Date: 20050823
  Transmission Date: 20060218
  Serious: Yes (Hospitalization)
  Sender: FDA-Public Use
  Company Number: 2005UW12587

PATIENT
  Age: 77 Year
  Sex: Male

DRUGS (3)
  1. ATACAND [Suspect]
     Route: 048
     Dates: start: 20010101
  2. ASPIRIN [Concomitant]
     Indication: PAIN
  3. DICETAL [Concomitant]

REACTIONS (3)
  - DIVERTICULITIS [None]
  - DIVERTICULITIS INTESTINAL HAEMORRHAGIC [None]
  - DRY MOUTH [None]
